FAERS Safety Report 13351116 (Version 3)
Quarter: 2017Q2

REPORT INFORMATION
  Report Type: Spontaneous
  Country: JP (occurrence: JP)
  Receive Date: 20170320
  Receipt Date: 20170601
  Transmission Date: 20170830
  Serious: Yes (Death, Life-Threatening)
  Sender: FDA-Public Use
  Company Number: JP-SA-2017SA040775

PATIENT
  Age: 86 Year
  Sex: Female
  Weight: 50.6 kg

DRUGS (6)
  1. ATEDIO [Concomitant]
     Indication: HYPERTENSION
     Route: 048
     Dates: start: 20161108, end: 20170215
  2. NESINA [Suspect]
     Active Substance: ALOGLIPTIN BENZOATE
     Indication: TYPE 2 DIABETES MELLITUS
     Route: 048
     Dates: start: 20121030, end: 20170215
  3. SOLOSTAR [Concomitant]
     Active Substance: DEVICE
     Indication: TYPE 2 DIABETES MELLITUS
     Dates: start: 20130510, end: 20170215
  4. MAGMITT [Concomitant]
     Active Substance: MAGNESIUM OXIDE
     Indication: CONSTIPATION
     Route: 048
     Dates: start: 20160215, end: 20170105
  5. CONSTAN [Concomitant]
     Active Substance: ALPRAZOLAM
     Indication: ANXIETY DISORDER
     Route: 048
     Dates: start: 20160215, end: 20161104
  6. APIDRA SOLOSTAR [Suspect]
     Active Substance: INSULIN GLULISINE
     Indication: TYPE 2 DIABETES MELLITUS
     Dosage: DOSE:3 UNIT(S)
     Route: 058
     Dates: start: 20130510, end: 20170215

REACTIONS (4)
  - Hypoglycaemic coma [Recovered/Resolved with Sequelae]
  - Pneumonia [Fatal]
  - Respiratory failure [Fatal]
  - Hypoglycaemic encephalopathy [Recovered/Resolved with Sequelae]

NARRATIVE: CASE EVENT DATE: 20170216
